FAERS Safety Report 4434805-8 (Version None)
Quarter: 2004Q3

REPORT INFORMATION
  Report Type: 
  Country: None (occurrence: None)
  Receive Date: 20040827
  Receipt Date: 20040818
  Transmission Date: 20050211
  Serious: Yes (Other)
  Sender: FDA-Public Use
  Company Number: PHBS2004DE10900

PATIENT
  Age: 50 Year
  Sex: Male

DRUGS (9)
  1. CYCLOSPORINE [Suspect]
     Indication: STEM CELL TRANSPLANT
     Dosage: 2.5 MG/KG, BID
     Route: 042
  2. CYCLOPHOSPHAMIDE [Suspect]
     Indication: STEM CELL TRANSPLANT
     Dosage: 60 MG/KG/D
     Route: 042
  3. FLUDARABINE PHOSPHATE [Suspect]
     Indication: STEM CELL TRANSPLANT
     Dosage: 25 MG/M2/D
     Route: 042
  4. ATG-FRESENIUS [Suspect]
     Indication: STEM CELL TRANSPLANT
     Dosage: 10 MG/KG/D
     Route: 042
  5. CIPROFLOXACIN [Concomitant]
     Dosage: 500 MG, BID
  6. AMPHOTERICIN B [Concomitant]
     Dosage: 1 ML, QID
  7. CO-TRIMOXAZOLE [Concomitant]
  8. ACYCLOVIR [Concomitant]
     Dosage: 5 MG/KG, TID
     Route: 042
  9. IMMUNE GLOBULIN INTRAVENOUS (HUMAN) [Concomitant]
     Dosage: 10 G EVERY 2 WEEKS
     Route: 042

REACTIONS (5)
  - CYTOMEGALOVIRUS INFECTION [None]
  - EVAN'S SYNDROME [None]
  - GRAFT VERSUS HOST DISEASE [None]
  - HAEMOLYTIC ANAEMIA [None]
  - IDIOPATHIC THROMBOCYTOPENIC PURPURA [None]
